FAERS Safety Report 9791936 (Version 3)
Quarter: 2014Q3

REPORT INFORMATION
  Report Type: Spontaneous
  Country: US (occurrence: US)
  Receive Date: 20140102
  Receipt Date: 20140915
  Transmission Date: 20150326
  Serious: No
  Sender: FDA-Public Use
  Company Number: US-PFIZER INC-2013374180

PATIENT
  Age: 49 Year
  Sex: Female
  Weight: 72.56 kg

DRUGS (5)
  1. XANAX XR [Suspect]
     Active Substance: ALPRAZOLAM
     Dosage: 1 MG, 1X/DAY
     Dates: start: 20071219, end: 20080401
  2. XANAX [Suspect]
     Active Substance: ALPRAZOLAM
     Dosage: 2 MG, (TAKE ONE 45 MINUTES BEFORE MRI)
     Dates: start: 20100120
  3. XANAX XR [Suspect]
     Active Substance: ALPRAZOLAM
     Dosage: 1 MG, 2X/DAY
     Dates: start: 20101228
  4. XANAX [Suspect]
     Active Substance: ALPRAZOLAM
     Dosage: UNK, AS NEEDED (0.5, TAKE: 1-2, DAILY PRN)
     Dates: start: 20101228
  5. XANAX [Suspect]
     Active Substance: ALPRAZOLAM
     Dosage: 2 MG, (TAKE ONE 45 MINUTES BEFORE MRI)
     Dates: start: 20121128

REACTIONS (3)
  - Amnesia [Unknown]
  - Drug intolerance [Unknown]
  - Drug hypersensitivity [Unknown]
